FAERS Safety Report 6032119-6 (Version None)
Quarter: 2009Q1

REPORT INFORMATION
  Report Type: 
  Country: None (occurrence: None)
  Receive Date: 20090107
  Receipt Date: 20081226
  Transmission Date: 20090719
  Serious: No
  Sender: FDA-Public Use
  Company Number: 2009-189140-NL

PATIENT
  Age: 48 Year
  Sex: Female

DRUGS (3)
  1. MARVELON [Suspect]
     Dosage: DF
     Dates: start: 20060401, end: 20060629
  2. PAROXETINE HCL [Concomitant]
  3. CLOTIAZEPAM [Concomitant]

REACTIONS (4)
  - ANXIETY [None]
  - METRORRHAGIA [None]
  - MUSCULOSKELETAL CHEST PAIN [None]
  - REFLUX OESOPHAGITIS [None]
